FAERS Safety Report 13332338 (Version 1)
Quarter: 2017Q1

REPORT INFORMATION
  Report Type: Spontaneous
  Country: BE (occurrence: BE)
  Receive Date: 20170313
  Receipt Date: 20170313
  Transmission Date: 20170428
  Serious: Yes (Death, Hospitalization)
  Sender: FDA-Public Use
  Company Number: BE-PFIZER INC-2017104685

PATIENT
  Age: 71 Year
  Sex: Female

DRUGS (7)
  1. FLECAINIDE [Concomitant]
     Active Substance: FLECAINIDE
     Dosage: 150 MG, 1X/DAY
  2. ATENOLOL. [Suspect]
     Active Substance: ATENOLOL
     Dosage: 10 MG, 1X/DAY
     Route: 048
  3. AMLODIPINE BESILATE/HYDROCHLOROTHIAZIDE/OLMESARTAN MEDOXOMIL [Concomitant]
     Dosage: UNK
  4. MOXONIDINE [Concomitant]
     Active Substance: MOXONIDINE
     Dosage: 0.4 MG, 1X/DAY
  5. ACENOCOUMAROL [Concomitant]
     Active Substance: ACENOCOUMAROL
     Dosage: UNK
  6. INSULIN [Concomitant]
     Active Substance: INSULIN NOS
     Dosage: 2 DAILY INJECTION OF PREMIXED INSULIN BIASPART 30
  7. ROSUVASTATIN. [Suspect]
     Active Substance: ROSUVASTATIN
     Dosage: 10 MG, 1X/DAY
     Route: 048

REACTIONS (3)
  - Cardiac neoplasm unspecified [Fatal]
  - Atrial fibrillation [Fatal]
  - Oedema peripheral [Fatal]
